FAERS Safety Report 20255943 (Version 1)
Quarter: 2021Q4

REPORT INFORMATION
  Report Type: Spontaneous
  Country: US (occurrence: US)
  Receive Date: 20211230
  Receipt Date: 20211230
  Transmission Date: 20220303
  Serious: No
  Sender: FDA-Public Use
  Company Number: US-ORGANON-O2112USA001542

PATIENT
  Sex: Female

DRUGS (1)
  1. NASONEX [Suspect]
     Active Substance: MOMETASONE FUROATE
     Indication: Allergic sinusitis
     Dosage: 2 SPRAYS EACH NOSTRIL 1X PER DAY
     Route: 045
     Dates: start: 2014

REACTIONS (7)
  - Nasal congestion [Unknown]
  - Visual impairment [Unknown]
  - Vision blurred [Unknown]
  - Headache [Unknown]
  - Product dose omission issue [Unknown]
  - Expired product administered [Unknown]
  - Product availability issue [Unknown]

NARRATIVE: CASE EVENT DATE: 20210101
